FAERS Safety Report 24607165 (Version 1)
Quarter: 2024Q4

REPORT INFORMATION
  Report Type: Spontaneous
  Country: US (occurrence: None)
  Receive Date: 20241110
  Receipt Date: 20241110
  Transmission Date: 20250115
  Serious: Yes (Disabling)
  Sender: Public
  Company Number: None

PATIENT
  Age: 46 Year
  Sex: Female
  Weight: 103.5 kg

DRUGS (21)
  1. OZEMPIC [Suspect]
     Active Substance: SEMAGLUTIDE
     Indication: Glucose tolerance impaired
     Dosage: OTHER QUANTITY : 7 INJECTION(S);?OTHER FREQUENCY : ONCE WEEKLY;?
     Route: 030
     Dates: start: 20240201, end: 20240801
  2. BELSOMRA [Concomitant]
     Active Substance: SUVOREXANT
  3. TRELEGY ELLIPTA [Concomitant]
     Active Substance: FLUTICASONE FUROATE\UMECLIDINIUM BROMIDE\VILANTEROL TRIFENATATE
  4. XANAX [Concomitant]
     Active Substance: ALPRAZOLAM
  5. CARDIZEM [Concomitant]
     Active Substance: DILTIAZEM HYDROCHLORIDE
  6. XYZAL [Concomitant]
     Active Substance: LEVOCETIRIZINE DIHYDROCHLORIDE
  7. CELEXA [Concomitant]
     Active Substance: CITALOPRAM HYDROBROMIDE
  8. LAMICTAL [Concomitant]
     Active Substance: LAMOTRIGINE
  9. ELIQUIS [Concomitant]
     Active Substance: APIXABAN
  10. PROTONIX [Concomitant]
     Active Substance: PANTOPRAZOLE SODIUM
  11. MIRAPEX [Concomitant]
     Active Substance: PRAMIPEXOLE DIHYDROCHLORIDE
  12. SINGULAIR [Concomitant]
     Active Substance: MONTELUKAST SODIUM
  13. MOUNJARO [Concomitant]
     Active Substance: TIRZEPATIDE
  14. BUMEX [Concomitant]
     Active Substance: BUMETANIDE
  15. BUSPAR [Concomitant]
     Active Substance: BUSPIRONE HYDROCHLORIDE
  16. GABAPENTIN [Concomitant]
     Active Substance: GABAPENTIN
  17. LIPITOR [Concomitant]
     Active Substance: ATORVASTATIN CALCIUM
  18. MELATONIN [Concomitant]
     Active Substance: MELATONIN
  19. POTASSIUM [Concomitant]
     Active Substance: POTASSIUM
  20. ASPIRIN [Concomitant]
     Active Substance: ASPIRIN
  21. VITAMINS [Concomitant]
     Active Substance: VITAMINS

REACTIONS (1)
  - Vertigo [None]

NARRATIVE: CASE EVENT DATE: 20240301
